FAERS Safety Report 22270457 (Version 1)
Quarter: 2023Q2

REPORT INFORMATION
  Report Type: Spontaneous
  Country: US (occurrence: None)
  Receive Date: 20230428
  Receipt Date: 20230428
  Transmission Date: 20230721
  Serious: No
  Sender: FDA-Public Use
  Company Number: None

PATIENT
  Sex: Female

DRUGS (1)
  1. ENBREL [Suspect]
     Active Substance: ETANERCEPT
     Indication: Rheumatoid arthritis
     Dosage: OTHER FREQUENCY : Q 7 DAYS;?
     Dates: start: 20221207

REACTIONS (5)
  - Drug ineffective [None]
  - Condition aggravated [None]
  - Joint swelling [None]
  - Arthralgia [None]
  - Pain in extremity [None]
